FAERS Safety Report 12964204 (Version 3)
Quarter: 2016Q4

REPORT INFORMATION
  Report Type: Report from Study
  Country: US (occurrence: US)
  Receive Date: 20161122
  Receipt Date: 20161228
  Transmission Date: 20170207
  Serious: Yes (Other)
  Sender: FDA-Public Use
  Company Number: US-MALLINCKRODT-T201604969

PATIENT
  Age: 55 Year
  Sex: Female

DRUGS (3)
  1. OXYGEN. [Concomitant]
     Active Substance: OXYGEN
     Indication: SARCOIDOSIS
     Dosage: UNK
     Route: 055
     Dates: start: 201606
  2. REPOSITORY CORTICOTROPIN INJECTION [Suspect]
     Active Substance: CORTICOTROPIN
     Indication: SARCOIDOSIS
     Dosage: 80 UNITS EVERY THREE DAYS
     Route: 058
     Dates: start: 20160831
  3. PREDNISONE. [Concomitant]
     Active Substance: PREDNISONE

REACTIONS (5)
  - Cholelithiasis [Unknown]
  - Abdominal pain [Unknown]
  - Non-cardiac chest pain [Not Recovered/Not Resolved]
  - Incision site pain [Recovering/Resolving]
  - Somnolence [Unknown]

NARRATIVE: CASE EVENT DATE: 20160831
